FAERS Safety Report 8358049-2 (Version None)
Quarter: 2012Q2

REPORT INFORMATION
  Report Type: 
  Country: None (occurrence: None)
  Receive Date: 20120514
  Receipt Date: 20120504
  Transmission Date: 20120825
  Serious: No
  Sender: FDA-Public Use
  Company Number: NL-JNJFOC-20091106104

PATIENT
  Sex: Male

DRUGS (2)
  1. REMICADE [Suspect]
     Indication: CROHN'S DISEASE
     Route: 042
     Dates: start: 20090113
  2. PURINETHOL [Concomitant]
     Indication: CROHN'S DISEASE
     Dates: start: 20090421

REACTIONS (1)
  - IMPETIGO [None]
